FAERS Safety Report 7368446-X (Version None)
Quarter: 2011Q1

REPORT INFORMATION
  Report Type: 
  Country: None (occurrence: None)
  Receive Date: 20110317
  Receipt Date: 20110317
  Transmission Date: 20110831
  Serious: Yes (Other)
  Sender: FDA-Public Use
  Company Number: None

PATIENT
  Age: 30 Year
  Sex: Female

DRUGS (5)
  1. INVEGA [Suspect]
     Indication: PSYCHOTIC DISORDER
     Dosage: IM LEFT DELTOID
     Route: 030
  2. INVEGA [Suspect]
     Indication: BIPOLAR I DISORDER
     Dosage: IM LEFT DELTOID
     Route: 030
  3. SEROQUEL [Concomitant]
  4. LAMICTAL [Concomitant]
  5. CLONOPIN [Concomitant]

REACTIONS (10)
  - THINKING ABNORMAL [None]
  - DRY MOUTH [None]
  - MUSCULOSKELETAL STIFFNESS [None]
  - MELANOCYTIC NAEVUS [None]
  - THIRST [None]
  - CONFUSIONAL STATE [None]
  - TONGUE DISORDER [None]
  - BREAST DISCHARGE [None]
  - MUSCLE TWITCHING [None]
  - BREAST ENLARGEMENT [None]
